FAERS Safety Report 4645427-8 (Version None)
Quarter: 2005Q2

REPORT INFORMATION
  Report Type: 
  Country: None (occurrence: None)
  Receive Date: 20050425
  Receipt Date: 20050415
  Transmission Date: 20051028
  Serious: Yes (Life-Threatening, Other)
  Sender: FDA-Public Use
  Company Number: 2004-12-0888

PATIENT
  Age: 56 Year
  Sex: Male
  Weight: 64 kg

DRUGS (19)
  1. PEG-INTRON [Suspect]
     Indication: HEPATITIS C
     Dosage: SEE IMAGE
     Dates: start: 20040831, end: 20040910
  2. PEG-INTRON [Suspect]
     Indication: HEPATITIS C
     Dosage: SEE IMAGE
     Dates: start: 20040910, end: 20040924
  3. PEG-INTRON [Suspect]
     Indication: HEPATITIS C
     Dosage: SEE IMAGE
     Dates: start: 20040924, end: 20050118
  4. PEG-INTRON [Suspect]
     Indication: HEPATITIS C
     Dosage: SEE IMAGE
     Dates: start: 20040118, end: 20050215
  5. PEG-INTRON [Suspect]
     Indication: HEPATITIS C
     Dosage: SEE IMAGE
     Dates: start: 20050118, end: 20050215
  6. RIBAVIRIN [Concomitant]
     Indication: HEPATITIS C
     Dosage: SEE IMAGE
     Route: 048
     Dates: start: 20040831, end: 20040924
  7. RIBAVIRIN [Concomitant]
     Indication: HEPATITIS C
     Dosage: SEE IMAGE
     Route: 048
     Dates: start: 20040924, end: 20041022
  8. RIBAVIRIN [Concomitant]
     Indication: HEPATITIS C
     Dosage: SEE IMAGE
     Route: 048
     Dates: end: 20050215
  9. RIBAVIRIN [Concomitant]
     Indication: HEPATITIS C
     Dosage: SEE IMAGE
     Route: 048
     Dates: start: 20041022
  10. HUMULIN [Concomitant]
  11. DIAMICRON [Concomitant]
  12. . [Concomitant]
  13. RIBAVIRIN [Suspect]
     Indication: HEPATITIS C
     Dosage: 1000-400* ORAL
     Route: 048
     Dates: start: 20040831, end: 20050215
  14. RIBAVIRIN [Suspect]
     Indication: HEPATITIS C
     Dosage: 1000 MG QD ORAL
     Route: 048
     Dates: start: 20040831, end: 20040924
  15. RIBAVIRIN [Suspect]
     Indication: HEPATITIS C
     Dosage: 800 MG QD ORAL
     Route: 048
     Dates: start: 20040924, end: 20041022
  16. RIBAVIRIN [Suspect]
     Indication: HEPATITIS C
     Dosage: 600 MG QD ORAL
     Route: 048
     Dates: start: 20041022
  17. RIBAVIRIN [Suspect]
     Indication: HEPATITIS C
     Dosage: 400 MG QD ORAL
     Route: 048
     Dates: end: 20050215
  18. HUMULIN 70/30 SUBCUTANEOUS FOR DIABETES [Concomitant]
  19. DIAMICRON FOR DIABETES [Concomitant]

REACTIONS (3)
  - FATIGUE [None]
  - LUNG NEOPLASM MALIGNANT [None]
  - PLATELET COUNT DECREASED [None]
